FAERS Safety Report 13594482 (Version 3)
Quarter: 2017Q3

REPORT INFORMATION
  Report Type: Spontaneous
  Country: DE (occurrence: DE)
  Receive Date: 20170530
  Receipt Date: 20170811
  Transmission Date: 20171127
  Serious: Yes (Hospitalization)
  Sender: FDA-Public Use
  Company Number: DE-ROCHE-1939276

PATIENT
  Age: 36 Year
  Sex: Female
  Weight: 94 kg

DRUGS (4)
  1. ROACTEMRA [Suspect]
     Active Substance: TOCILIZUMAB
     Route: 042
     Dates: start: 20170213
  2. ROACTEMRA [Suspect]
     Active Substance: TOCILIZUMAB
     Route: 042
     Dates: start: 20170314
  3. ROACTEMRA [Suspect]
     Active Substance: TOCILIZUMAB
     Route: 042
     Dates: start: 20170410, end: 20170410
  4. ROACTEMRA [Suspect]
     Active Substance: TOCILIZUMAB
     Indication: RHEUMATOID ARTHRITIS
     Dosage: LAST INFUSION OF TOCILIZUMAB PRIOR TO THE EVENTS: 10/APR/2017
     Route: 042
     Dates: start: 201001

REACTIONS (3)
  - Diverticulitis [Unknown]
  - Diverticulum intestinal [Not Recovered/Not Resolved]
  - Diverticular perforation [Unknown]

NARRATIVE: CASE EVENT DATE: 201704
